FAERS Safety Report 15867867 (Version 1)
Quarter: 2019Q1

REPORT INFORMATION
  Report Type: Spontaneous
  Country: IT (occurrence: IT)
  Receive Date: 20190125
  Receipt Date: 20190125
  Transmission Date: 20190417
  Serious: Yes (Hospitalization)
  Sender: FDA-Public Use
  Company Number: IT-PFIZER INC-2019034658

PATIENT
  Age: 73 Year
  Sex: Male

DRUGS (3)
  1. LYRICA [Suspect]
     Active Substance: PREGABALIN
     Indication: NEURALGIA
     Dosage: 150 MG, 1X/DAY
     Route: 048
     Dates: start: 20181212, end: 20181215
  2. CARDIOASPIRIN [Concomitant]
     Active Substance: ASPIRIN
  3. CARDURA [Concomitant]
     Active Substance: DOXAZOSIN MESYLATE

REACTIONS (3)
  - Sopor [Unknown]
  - Cerebral haematoma [Unknown]
  - Off label use [Recovered/Resolved]

NARRATIVE: CASE EVENT DATE: 20181212
